FAERS Safety Report 14869348 (Version 1)
Quarter: 2018Q2

REPORT INFORMATION
  Report Type: Spontaneous
  Country: US (occurrence: US)
  Receive Date: 20180509
  Receipt Date: 20180509
  Transmission Date: 20180711
  Serious: Yes (Other)
  Sender: FDA-Public Use
  Company Number: PHEH2018US017283

PATIENT
  Age: 3 Year
  Sex: Male

DRUGS (1)
  1. CARBOPLATIN. [Suspect]
     Active Substance: CARBOPLATIN
     Indication: HEPATOBLASTOMA RECURRENT
     Dosage: UNK, CYCLIC
     Route: 065
     Dates: start: 20160408

REACTIONS (1)
  - Liver disorder [Unknown]
